FAERS Safety Report 15490585 (Version 2)
Quarter: 2018Q4

REPORT INFORMATION
  Report Type: Spontaneous
  Country: IT (occurrence: IT)
  Receive Date: 20181011
  Receipt Date: 20181031
  Transmission Date: 20190205
  Serious: Yes (Other)
  Sender: FDA-Public Use
  Company Number: PHHY2018IT122070

PATIENT
  Age: 47 Year
  Sex: Male

DRUGS (1)
  1. GILENYA [Suspect]
     Active Substance: FINGOLIMOD HYDROCHLORIDE
     Indication: MULTIPLE SCLEROSIS
     Dosage: 0.5 MG, QD
     Route: 048
     Dates: start: 20150301, end: 20180926

REACTIONS (3)
  - Gallbladder adenocarcinoma [Unknown]
  - Metastases to adrenals [Unknown]
  - Metastases to liver [Unknown]

NARRATIVE: CASE EVENT DATE: 20180926
